FAERS Safety Report 4667015-X (Version None)
Quarter: 2005Q2

REPORT INFORMATION
  Report Type: 
  Country: None (occurrence: None)
  Receive Date: 20050520
  Receipt Date: 20040409
  Transmission Date: 20051028
  Serious: Yes (Other)
  Sender: FDA-Public Use
  Company Number: PHEH2004US04080

PATIENT
  Age: 66 Year
  Sex: Female

DRUGS (3)
  1. PREDNISONE TAB [Concomitant]
     Dosage: 10 MG X 5 TREATMENTS
     Dates: start: 20020511, end: 20020515
  2. TAMOXIFEN [Concomitant]
     Dosage: 20 MG FOR 5 TREATMENTS
     Dates: start: 20020511, end: 20020515
  3. AREDIA [Suspect]
     Dosage: 60-90MG OVER 1-2 HOURS
     Dates: start: 20010412, end: 20030724

REACTIONS (3)
  - EXOSTOSIS [None]
  - ORAL SURGERY [None]
  - OSTEONECROSIS [None]
